FAERS Safety Report 4901600-2 (Version None)
Quarter: 2006Q1

REPORT INFORMATION
  Report Type: 
  Country: None (occurrence: None)
  Receive Date: 20060206
  Receipt Date: 20050524
  Transmission Date: 20060701
  Serious: Yes (Hospitalization, Other)
  Sender: FDA-Public Use
  Company Number: US-BRISTOL-MYERS SQUIBB COMPANY-12980678

PATIENT
  Age: 81 Year
  Sex: Male

DRUGS (6)
  1. TAXOL [Suspect]
     Indication: GASTROOESOPHAGEAL CANCER
     Route: 042
  2. KYTRIL [Concomitant]
  3. DECADRON PHOSPHATE [Concomitant]
  4. MONOPRIL [Concomitant]
  5. SYNTHROID [Concomitant]
  6. PREVACID [Concomitant]

REACTIONS (2)
  - ARTERIOSPASM CORONARY [None]
  - MYOCARDIAL INFARCTION [None]
